FAERS Safety Report 8000125-8 (Version None)
Quarter: 2011Q4

REPORT INFORMATION
  Report Type: 
  Country: None (occurrence: None)
  Receive Date: 20111123
  Receipt Date: 20110825
  Transmission Date: 20120403
  Serious: Yes (Hospitalization)
  Sender: FDA-Public Use
  Company Number: 333756

PATIENT
  Sex: Male
  Weight: 107 kg

DRUGS (11)
  1. COUMADIN [Concomitant]
  2. METFORMIN HCL [Concomitant]
  3. ANDROGEL [Concomitant]
  4. VICTOZA [Suspect]
     Indication: TYPE 2 DIABETES MELLITUS
     Dosage: , SUBCUTANEOUS
     Route: 058
     Dates: start: 20100714, end: 20110519
  5. VICTOZA [Suspect]
     Indication: TYPE 2 DIABETES MELLITUS
     Dosage: , SUBCUTANEOUS
     Route: 058
     Dates: start: 20110526, end: 20110706
  6. DIGOXIN [Concomitant]
  7. ASPIRIN [Concomitant]
  8. LOVASTATIN [Concomitant]
  9. LEXAPRO [Concomitant]
  10. LISINOPRIL [Suspect]
     Indication: PRODUCT USED FOR UNKNOWN INDICATION
     Dosage: 20 MG
     Dates: start: 20110501, end: 20110519
  11. ATENOLOL [Concomitant]

REACTIONS (1)
  - PANCREATITIS [None]
